FAERS Safety Report 8757763 (Version 2)
Quarter: 2012Q4

REPORT INFORMATION
  Report Type: 
  Country: GB (occurrence: GB)
  Receive Date: 20120828
  Receipt Date: 20120920
  Transmission Date: 20130627
  Serious: Yes (Hospitalization, Other)
  Sender: FDA-Public Use
  Company Number: PHHY2012GB072560

PATIENT
  Age: 87 Year
  Sex: Female

DRUGS (8)
  1. TRAMADOL [Suspect]
     Indication: POSTOPERATIVE ANALGESIA
     Dosage: 50 mg, BID
     Route: 048
  2. TRAMADOL [Suspect]
     Dosage: 100 mg, QID
     Route: 048
     Dates: start: 20120728, end: 20120811
  3. ASPIRIN [Concomitant]
  4. ATORVASTATIN [Concomitant]
  5. FELODIPINE [Concomitant]
  6. LOSARTAN [Concomitant]
  7. OMEPRAZOLE [Concomitant]
  8. STRONTIUM RANELATE [Concomitant]

REACTIONS (1)
  - Hyponatraemia [Recovered/Resolved]
